FAERS Safety Report 7716133-8 (Version None)
Quarter: 2011Q3

REPORT INFORMATION
  Report Type: 
  Country: None (occurrence: None)
  Receive Date: 20110829
  Receipt Date: 20110823
  Transmission Date: 20111222
  Serious: Yes (Hospitalization, Other)
  Sender: FDA-Public Use
  Company Number: CA-ROXANE LABORATORIES, INC.-2011-RO-01180RO

PATIENT
  Age: 42 Year
  Sex: Male

DRUGS (8)
  1. 5-AMINOSALICYLIC ACID [Suspect]
     Indication: COLITIS ULCERATIVE
     Dosage: 3 G
     Route: 048
  2. INFLIXIMAB [Suspect]
     Indication: CONDITION AGGRAVATED
     Route: 042
  3. PREDNISONE [Suspect]
     Indication: COLITIS ULCERATIVE
     Route: 048
  4. AZATHIOPRINE [Suspect]
     Indication: COLITIS ULCERATIVE
  5. AZATHIOPRINE [Suspect]
     Indication: INFLAMMATORY BOWEL DISEASE
     Dosage: 150 MG
  6. ADALIMUMAB [Suspect]
     Indication: CONDITION AGGRAVATED
     Route: 058
  7. PREDNISONE [Suspect]
     Indication: INFLAMMATORY BOWEL DISEASE
  8. 5-AMINOSALICYLIC ACID [Suspect]
     Indication: INFLAMMATORY BOWEL DISEASE
     Dosage: 4.5 G
     Route: 048

REACTIONS (15)
  - ENCEPHALITIS VIRAL [None]
  - URINARY INCONTINENCE [None]
  - MUSCULAR WEAKNESS [None]
  - SEPSIS [None]
  - RENAL TUBULAR NECROSIS [None]
  - MYALGIA [None]
  - CONDITION AGGRAVATED [None]
  - BLOOD CREATINE PHOSPHOKINASE INCREASED [None]
  - ANAEMIA [None]
  - DEEP VEIN THROMBOSIS [None]
  - BALANCE DISORDER [None]
  - GASTROINTESTINAL HAEMORRHAGE [None]
  - DYSPHONIA [None]
  - TRANSFUSION REACTION [None]
  - RENAL FAILURE ACUTE [None]
